FAERS Safety Report 16280443 (Version 3)
Quarter: 2019Q3

REPORT INFORMATION
  Report Type: Spontaneous
  Country: FR (occurrence: FR)
  Receive Date: 20190507
  Receipt Date: 20190703
  Transmission Date: 20191004
  Serious: Yes (Hospitalization, Other)
  Sender: FDA-Public Use
  Company Number: PHHY2019FR101292

PATIENT
  Age: 60 Year
  Sex: Male

DRUGS (20)
  1. BACLOFEN. [Suspect]
     Active Substance: BACLOFEN
     Dosage: 70 MG, QD
     Route: 065
  2. BACLOFEN. [Suspect]
     Active Substance: BACLOFEN
     Dosage: DOSAGE OF 150 MG/D AFTER MEDICAL EVALUATION
     Route: 065
  3. SPIRONOLACTONE. [Concomitant]
     Active Substance: SPIRONOLACTONE
     Indication: HYPERTENSION
     Route: 065
  4. ASPIRIN. [Concomitant]
     Active Substance: ASPIRIN
     Indication: OSTEOARTHRITIS
     Dosage: UNK
     Route: 065
  5. HYDROXYZINE [Suspect]
     Active Substance: HYDROXYZINE HYDROCHLORIDE
     Indication: PRODUCT USED FOR UNKNOWN INDICATION
     Dosage: 25 MG
     Route: 065
  6. FLECAINIDE [Concomitant]
     Active Substance: FLECAINIDE
     Indication: ATRIAL FIBRILLATION
     Dosage: UNK
     Route: 065
  7. BACLOFEN. [Suspect]
     Active Substance: BACLOFEN
     Dosage: REGIMEN UP TO 300 MG/D
     Route: 065
  8. BACLOFEN. [Suspect]
     Active Substance: BACLOFEN
     Dosage: 180 TO 200 MG/D
     Route: 065
  9. BACLOFEN. [Suspect]
     Active Substance: BACLOFEN
     Dosage: DOSES TO 80 MG/D
     Route: 065
  10. MIANSERIN HYDROCHLORIDE [Suspect]
     Active Substance: MIANSERIN HYDROCHLORIDE
     Indication: PRODUCT USED FOR UNKNOWN INDICATION
     Dosage: 10 MG
     Route: 065
  11. RILMENIDINE [Concomitant]
     Active Substance: RILMENIDINE
     Indication: HYPERTENSION
     Route: 065
  12. BISOPROLOL [Concomitant]
     Active Substance: BISOPROLOL
     Indication: ATRIAL FIBRILLATION
     Route: 065
  13. ABACAVIR + LAMIVUDIN [Concomitant]
     Active Substance: ABACAVIR\LAMIVUDINE
     Indication: HIV INFECTION
     Dosage: UNK
     Route: 065
  14. CANNABIS [Concomitant]
     Active Substance: CANNABIS SATIVA SUBSP. INDICA TOP
     Indication: PRODUCT USED FOR UNKNOWN INDICATION
     Route: 065
  15. TELMISARTAN. [Concomitant]
     Active Substance: TELMISARTAN
     Indication: HYPERTENSION
     Dosage: UNK
     Route: 065
  16. NEVIRAPINE. [Concomitant]
     Active Substance: NEVIRAPINE
     Indication: HIV INFECTION
     Route: 065
  17. BACLOFEN. [Suspect]
     Active Substance: BACLOFEN
     Indication: EATING DISORDER
     Dosage: 120 TO 140 MG/D
     Route: 065
  18. BACLOFEN. [Suspect]
     Active Substance: BACLOFEN
     Dosage: MIXED 10 AND 25 MG PILLS TO OBTAIN FULL DOSAGE
     Route: 065
  19. LERCANIDIPINE [Concomitant]
     Active Substance: LERCANIDIPINE
     Indication: HYPERTENSION
     Route: 065
  20. BACLOFEN. [Suspect]
     Active Substance: BACLOFEN
     Dosage: DOSES UP TO 300 MG/D (60MG TAKEN 5 TIMEA A DAY)
     Route: 065
     Dates: start: 2016

REACTIONS (18)
  - Irritability [Recovered/Resolved]
  - Cognitive disorder [Recovered/Resolved]
  - Nausea [Recovered/Resolved]
  - Hallucination, visual [Recovered/Resolved]
  - Delusional perception [Recovered/Resolved]
  - Somnolence [Recovered/Resolved]
  - Drug withdrawal syndrome [Recovered/Resolved]
  - Confusional state [Recovered/Resolved]
  - Time perception altered [Recovered/Resolved]
  - Psychomotor hyperactivity [Recovered/Resolved]
  - Amnesia [Recovered/Resolved]
  - Aggression [Recovered/Resolved]
  - Overdose [Unknown]
  - Psychotic disorder [Unknown]
  - Off label use [Unknown]
  - Tachyphrenia [Recovered/Resolved]
  - Drug level increased [Recovered/Resolved]
  - Dizziness [Recovered/Resolved]
